FAERS Safety Report 7973950-7 (Version None)
Quarter: 2011Q4

REPORT INFORMATION
  Report Type: 
  Country: None (occurrence: None)
  Receive Date: 20111213
  Receipt Date: 20111207
  Transmission Date: 20120403
  Serious: Yes (Hospitalization, Congenital Anomaly)
  Sender: FDA-Public Use
  Company Number: US-GLAXOSMITHKLINE-A0685064A

PATIENT
  Sex: Female

DRUGS (2)
  1. PAXIL [Suspect]
     Indication: DEPRESSION
     Dosage: 20MG PER DAY
     Route: 064
     Dates: start: 20011120, end: 20020724
  2. MULTI-VITAMINS [Concomitant]
     Route: 064

REACTIONS (9)
  - UMBILICAL CORD ABNORMALITY [None]
  - FOETAL EXPOSURE DURING PREGNANCY [None]
  - URETERAL DISORDER [None]
  - ILEAL ATRESIA [None]
  - EXOMPHALOS [None]
  - ATRIAL SEPTAL DEFECT [None]
  - PATENT DUCTUS ARTERIOSUS [None]
  - CONGENITAL RENAL DISORDER [None]
  - CARDIAC DISORDER [None]
